FAERS Safety Report 7911286-0 (Version None)
Quarter: 2011Q4

REPORT INFORMATION
  Report Type: 
  Country: None (occurrence: None)
  Receive Date: 20111114
  Receipt Date: 20111101
  Transmission Date: 20120403
  Serious: Yes (Death)
  Sender: FDA-Public Use
  Company Number: JP-ELI_LILLY_AND_COMPANY-JP201109007706

PATIENT
  Age: 85 Year
  Sex: Female

DRUGS (2)
  1. FORTEO [Suspect]
     Dosage: UNK
     Route: 058
     Dates: start: 20110905, end: 20110909
  2. FORTEO [Suspect]
     Dosage: UNK
     Route: 058
     Dates: start: 20110930

REACTIONS (2)
  - DEATH [None]
  - LABILE BLOOD PRESSURE [None]
